FAERS Safety Report 20061510 (Version 1)
Quarter: 2021Q4

REPORT INFORMATION
  Report Type: Spontaneous
  Country: JP (occurrence: JP)
  Receive Date: 20211112
  Receipt Date: 20211112
  Transmission Date: 20220303
  Serious: Yes (Other)
  Sender: FDA-Public Use
  Company Number: JP-NOVARTISPH-NVSJ2021JP018530

PATIENT
  Sex: Male

DRUGS (1)
  1. TRAVATAN Z [Suspect]
     Active Substance: TRAVOPROST
     Indication: Product used for unknown indication
     Dosage: UNK
     Route: 047

REACTIONS (9)
  - Age-related macular degeneration [Unknown]
  - Retinal detachment [Unknown]
  - Vision blurred [Unknown]
  - Visual acuity reduced [Unknown]
  - Excessive eye blinking [Unknown]
  - Eye discharge [Unknown]
  - Eye pain [Unknown]
  - Abnormal sensation in eye [Unknown]
  - Needle track marks [Unknown]
